FAERS Safety Report 7058474-6 (Version None)
Quarter: 2010Q4

REPORT INFORMATION
  Report Type: 
  Country: None (occurrence: None)
  Receive Date: 20101022
  Receipt Date: 20101014
  Transmission Date: 20110411
  Serious: Yes (Other)
  Sender: FDA-Public Use
  Company Number: US-WYE-H17478110

PATIENT
  Sex: Female
  Weight: 113.5 kg

DRUGS (21)
  1. EFFEXOR [Suspect]
     Indication: DEPRESSION
     Route: 048
     Dates: start: 20080101, end: 20100801
  2. EFFEXOR [Suspect]
     Indication: BIPOLAR DISORDER
  3. EFFEXOR [Suspect]
     Indication: ANXIETY
  4. EFFEXOR [Suspect]
     Indication: POST-TRAUMATIC STRESS DISORDER
  5. IMURAN [Concomitant]
     Dosage: UNKNOWN
  6. TAMOXIFEN CITRATE [Suspect]
     Indication: BREAST CANCER
     Dosage: UNKNOWN
     Dates: start: 20100101
  7. LEVOTHYROXINE [Concomitant]
     Dosage: UNKNOWN
  8. ASACOL [Concomitant]
     Dosage: UNKNOWN
  9. LASIX [Concomitant]
     Dosage: UNKNOWN
  10. KLOR-CON [Concomitant]
     Dosage: UNKNOWN
  11. ESTRADIOL [Concomitant]
     Dosage: UNKNOWN
  12. SINGULAIR [Concomitant]
     Dosage: UNKNOWN
  13. NEURONTIN [Suspect]
     Dosage: UNKNOWN
  14. CLONAZEPAM [Concomitant]
     Dosage: UNKNOWN
  15. LAMICTAL [Concomitant]
     Dosage: UNKNOWN
  16. CYCLOBENZAPRINE [Concomitant]
     Dosage: UNKNOWN
  17. TRAMADOL [Concomitant]
     Dosage: UNKNOWN
  18. SAVELLA [Concomitant]
     Dosage: UNKNOWN
  19. BYSTOLIC [Concomitant]
     Dosage: UNKNOWN
  20. ADVAIR DISKUS 100/50 [Concomitant]
     Dosage: UNKNOWN
  21. ABILIFY [Concomitant]
     Dosage: UNKNOWN

REACTIONS (6)
  - BREAST CANCER [None]
  - DRUG WITHDRAWAL SYNDROME [None]
  - HOT FLUSH [None]
  - INSOMNIA [None]
  - MEMORY IMPAIRMENT [None]
  - SUICIDAL IDEATION [None]
